FAERS Safety Report 8188988-7 (Version None)
Quarter: 2012Q1

REPORT INFORMATION
  Report Type: 
  Country: None (occurrence: None)
  Receive Date: 20120307
  Receipt Date: 20120222
  Transmission Date: 20120608
  Serious: Yes (Other)
  Sender: FDA-Public Use
  Company Number: TR-RANBAXY-2012R1-53171

PATIENT
  Age: 62 Year
  Sex: Male

DRUGS (5)
  1. INSULIN [Concomitant]
     Indication: DIABETES MELLITUS
     Dosage: UNK
     Route: 065
  2. SERTRALINE HYDROCHLORIDE [Suspect]
     Indication: NERVOUSNESS
  3. SERTRALINE HYDROCHLORIDE [Suspect]
     Indication: LOSS OF LIBIDO
  4. SERTRALINE HYDROCHLORIDE [Suspect]
     Indication: DECREASED APPETITE
     Dosage: 50MG/DAY
     Route: 065
  5. SERTRALINE HYDROCHLORIDE [Suspect]
     Indication: SLEEP DISORDER

REACTIONS (3)
  - MALAISE [None]
  - ECCHYMOSIS [None]
  - PAIN [None]
